FAERS Safety Report 6786171-0 (Version None)
Quarter: 2010Q2

REPORT INFORMATION
  Report Type: 
  Country: None (occurrence: None)
  Receive Date: 20100622
  Receipt Date: 20100622
  Transmission Date: 20101027
  Serious: No
  Sender: FDA-Public Use
  Company Number: None

PATIENT
  Weight: 87.3 kg

DRUGS (2)
  1. RALTEGRAVIR 400MG MERCK [Suspect]
     Indication: HIV INFECTION
     Dosage: 400MG TWICE DAILY ORAL
     Route: 048
     Dates: start: 20090715, end: 20091009
  2. DARUNAVIR 600MG [Suspect]
     Indication: HIV INFECTION
     Dosage: 600MG TWICE DAILY ORAL
     Route: 048
     Dates: start: 20081031

REACTIONS (1)
  - BLOOD CREATINE PHOSPHOKINASE INCREASED [None]
